FAERS Safety Report 10571380 (Version 4)
Quarter: 2015Q3

REPORT INFORMATION
  Report Type: Spontaneous
  Country: US (occurrence: US)
  Receive Date: 20141107
  Receipt Date: 20150720
  Transmission Date: 20151125
  Serious: Yes (Hospitalization)
  Sender: FDA-Public Use
  Company Number: US-BAYER-2014-162278

PATIENT
  Age: 18 Year
  Sex: Female
  Weight: 90 kg

DRUGS (2)
  1. MIRENA [Suspect]
     Active Substance: LEVONORGESTREL
     Indication: CONTRACEPTION
     Dosage: 20 MCG/24HR, CONT
     Route: 015
     Dates: start: 20090123, end: 20090724
  2. ZOSYN [Concomitant]
     Active Substance: PIPERACILLIN SODIUM\TAZOBACTAM SODIUM

REACTIONS (12)
  - Pelvic pain [Not Recovered/Not Resolved]
  - Back pain [Not Recovered/Not Resolved]
  - Emotional distress [None]
  - Maternal exposure before pregnancy [None]
  - Abdominal injury [None]
  - Uterine perforation [Not Recovered/Not Resolved]
  - Depression [None]
  - Libido decreased [None]
  - Injury [Not Recovered/Not Resolved]
  - Abdominal pain lower [Not Recovered/Not Resolved]
  - Anxiety [None]
  - Premature delivery [None]

NARRATIVE: CASE EVENT DATE: 200901
